FAERS Safety Report 17105071 (Version 2)
Quarter: 2019Q4

REPORT INFORMATION
  Report Type: Spontaneous
  Country: IN (occurrence: IN)
  Receive Date: 20191203
  Receipt Date: 20191204
  Transmission Date: 20200122
  Serious: Yes (Other)
  Sender: FDA-Public Use
  Company Number: IN-PFIZER INC-2019515321

PATIENT
  Sex: Male
  Weight: 1.76 kg

DRUGS (27)
  1. CYCLOPHOSPHAMIDE. [Suspect]
     Active Substance: CYCLOPHOSPHAMIDE
     Indication: BREAST CANCER METASTATIC
     Dosage: 800 MG, CYCLIC (DAY 1 OF THE CYCLE)
     Route: 064
     Dates: start: 201807
  2. DOCEAQUALIP [Suspect]
     Active Substance: DOCETAXEL
     Dosage: 100 MG, UNK (75 MG/M^2) (THIRD CYCLE)
     Route: 064
     Dates: start: 201808
  3. DOCEAQUALIP [Suspect]
     Active Substance: DOCETAXEL
     Dosage: 100 MG, UNK (75 MG/M^2) (FOURTH CYCLE)
     Route: 064
     Dates: start: 201809
  4. ONDANSETRON [Concomitant]
     Active Substance: ONDANSETRON
     Dosage: 8 MG, 2X/DAY
     Route: 064
     Dates: start: 201807
  5. DOXORUBICIN HCL [Suspect]
     Active Substance: DOXORUBICIN HYDROCHLORIDE
     Indication: BREAST CANCER METASTATIC
     Dosage: 80 MG, CYCLIC (FIRST CHEMOTHERAPY CYCLE)
     Route: 064
     Dates: start: 201807
  6. CYCLOPHOSPHAMIDE. [Suspect]
     Active Substance: CYCLOPHOSPHAMIDE
     Dosage: 800 MG, CYCLIC (SIXTH CYCLE)
     Route: 064
     Dates: start: 201811
  7. DOCEAQUALIP [Suspect]
     Active Substance: DOCETAXEL
     Dosage: 100 MG, UNK (75 MG/M^2) (FIFTH CYCLE)
     Route: 064
     Dates: start: 201809
  8. DOXORUBICIN HCL [Suspect]
     Active Substance: DOXORUBICIN HYDROCHLORIDE
     Dosage: 80 MG, CYCLIC (FIFTH CYCLE)
     Route: 064
     Dates: start: 201810
  9. CYCLOPHOSPHAMIDE. [Suspect]
     Active Substance: CYCLOPHOSPHAMIDE
     Dosage: 800 MG, CYCLIC (FOURTH CYCLE)
     Route: 064
     Dates: start: 201809
  10. DOCEAQUALIP [Suspect]
     Active Substance: DOCETAXEL
     Dosage: 100 MG, UNK (75 MG/M^2) (SECOND CYCLE)
     Route: 064
     Dates: start: 2018
  11. NIFEDIPINE. [Concomitant]
     Active Substance: NIFEDIPINE
     Indication: HYPERTENSION
     Dosage: 10 MG, 1X/DAY
     Route: 064
  12. FILGRASTIM [Concomitant]
     Active Substance: FILGRASTIM
     Dosage: 300 UG, 1X/DAY
     Route: 064
  13. DOCEAQUALIP [Suspect]
     Active Substance: DOCETAXEL
     Indication: BREAST CANCER METASTATIC
     Dosage: 100 MG, UNK (75 MG/M^2)
     Route: 064
     Dates: start: 201807
  14. DOCEAQUALIP [Suspect]
     Active Substance: DOCETAXEL
     Dosage: 100 MG, UNK (75 MG/M^2) (SIXTH CYCLE)
     Route: 064
     Dates: start: 201811
  15. PEGFILGRASTIM [Concomitant]
     Active Substance: PEGFILGRASTIM
     Dosage: 6 MG, 1X/DAY (DAY 2 OF THE CYCLE)
     Route: 064
  16. DOXORUBICIN HCL [Suspect]
     Active Substance: DOXORUBICIN HYDROCHLORIDE
     Dosage: 80 MG, CYCLIC (SECOND CYCLE)
     Route: 064
     Dates: start: 2018
  17. DOXORUBICIN HCL [Suspect]
     Active Substance: DOXORUBICIN HYDROCHLORIDE
     Dosage: 80 MG, CYCLIC (FOURTH CYCLE)
     Route: 062
     Dates: start: 201809
  18. CYCLOPHOSPHAMIDE. [Suspect]
     Active Substance: CYCLOPHOSPHAMIDE
     Dosage: 800 MG, CYCLIC (FIFTH CYCLE)
     Route: 064
     Dates: start: 201810
  19. CYCLOPHOSPHAMIDE. [Suspect]
     Active Substance: CYCLOPHOSPHAMIDE
     Dosage: 800 MG, CYCLIC (THIRD CYCLE)
     Route: 064
     Dates: start: 201808
  20. RANITIDINE. [Concomitant]
     Active Substance: RANITIDINE
     Dosage: 50 MG, 2X/DAY
     Route: 064
     Dates: start: 201807
  21. FILGRASTIM [Concomitant]
     Active Substance: FILGRASTIM
     Dosage: 300 UG, CYCLIC (DAYS 2-4 OF THE CYCLE)
     Route: 064
  22. DOXORUBICIN HCL [Suspect]
     Active Substance: DOXORUBICIN HYDROCHLORIDE
     Dosage: 80 MG, CYCLIC (THIRD CYCLE)
     Route: 064
     Dates: start: 201808
  23. DOXORUBICIN HCL [Suspect]
     Active Substance: DOXORUBICIN HYDROCHLORIDE
     Dosage: 80 MG, CYCLIC (SIXTH CYCLE)
     Route: 064
     Dates: start: 201811
  24. CYCLOPHOSPHAMIDE. [Suspect]
     Active Substance: CYCLOPHOSPHAMIDE
     Dosage: 800 MG, CYCLIC (SECOND CYCLE)
     Route: 064
     Dates: start: 2018
  25. THYROXINE [Concomitant]
     Active Substance: LEVOTHYROXINE
     Indication: HYPOTHYROIDISM
     Dosage: 75 UG, 1X/DAY
     Route: 064
  26. DEXAMETHASONE. [Concomitant]
     Active Substance: DEXAMETHASONE
     Dosage: 8 MG, 2X/DAY
     Route: 064
     Dates: start: 201807
  27. DEXAMETHASONE. [Concomitant]
     Active Substance: DEXAMETHASONE
     Dosage: 6 MG, UNK (4 DOSES, 6 HOURLY INTERVALS)
     Route: 064
     Dates: start: 2018

REACTIONS (2)
  - Premature baby [Unknown]
  - Maternal exposure during pregnancy [Unknown]
